FAERS Safety Report 14347624 (Version 1)
Quarter: 2018Q1

REPORT INFORMATION
  Report Type: Spontaneous
  Country: PT (occurrence: PT)
  Receive Date: 20180103
  Receipt Date: 20180103
  Transmission Date: 20180509
  Serious: Yes (Other)
  Sender: FDA-Public Use
  Company Number: PT-TEVA-2017-PT-835869

PATIENT
  Age: 49 Year
  Sex: Female
  Weight: 68 kg

DRUGS (1)
  1. TENOFOVIR TEVA [Suspect]
     Active Substance: TENOFOVIR
     Indication: CHRONIC HEPATITIS B
     Route: 048
     Dates: start: 20170911, end: 20171123

REACTIONS (3)
  - Rash generalised [Unknown]
  - Rash maculo-papular [Unknown]
  - Urticaria [Unknown]

NARRATIVE: CASE EVENT DATE: 20170921
